FAERS Safety Report 18105572 (Version 4)
Quarter: 2020Q4

REPORT INFORMATION
  Report Type: Report from Study
  Country: US (occurrence: US)
  Receive Date: 20200803
  Receipt Date: 20201103
  Transmission Date: 20210113
  Serious: Yes (Hospitalization, Other)
  Sender: FDA-Public Use
  Company Number: US-BAYER-2020-147406

PATIENT
  Age: 53 Year
  Sex: Female

DRUGS (4)
  1. STIVARGA [Suspect]
     Active Substance: REGORAFENIB
     Indication: COLORECTAL CANCER
     Dosage: DAILY DOSE 160 MG FOR 21 DAYS AND OFF 7 DAYS
     Route: 048
     Dates: start: 20200728
  2. STIVARGA [Suspect]
     Active Substance: REGORAFENIB
     Indication: COLORECTAL CANCER
     Dosage: DAILY DOSE 120 MG
     Route: 048
     Dates: start: 20200901, end: 20200930
  3. STIVARGA [Suspect]
     Active Substance: REGORAFENIB
     Indication: COLORECTAL CANCER
     Dosage: 80 MG DAILY
     Route: 048
     Dates: start: 20200714, end: 202007
  4. STIVARGA [Suspect]
     Active Substance: REGORAFENIB
     Indication: COLORECTAL CANCER
     Dosage: 120 MG, QD
     Route: 048
     Dates: start: 20200721, end: 202007

REACTIONS (26)
  - Feeling cold [Recovered/Resolved]
  - Energy increased [None]
  - Nausea [Not Recovered/Not Resolved]
  - Diarrhoea [Not Recovered/Not Resolved]
  - Blood creatinine increased [Not Recovered/Not Resolved]
  - Musculoskeletal pain [None]
  - Gait disturbance [Not Recovered/Not Resolved]
  - Dehydration [Not Recovered/Not Resolved]
  - Temperature intolerance [Not Recovered/Not Resolved]
  - Colorectal cancer [None]
  - Abscess limb [None]
  - Abscess rupture [Recovering/Resolving]
  - Rectal abscess [Recovering/Resolving]
  - Urinary incontinence [Recovered/Resolved]
  - Feeding disorder [Recovered/Resolved]
  - Transient ischaemic attack [None]
  - Gastrointestinal necrosis [Recovering/Resolving]
  - Vomiting [Recovered/Resolved]
  - Off label use [None]
  - Delirium [Recovered/Resolved]
  - Vomiting [Not Recovered/Not Resolved]
  - Dysphonia [Not Recovered/Not Resolved]
  - Abnormal loss of weight [Recovered/Resolved]
  - Pain [Not Recovered/Not Resolved]
  - Nausea [Recovered/Resolved]
  - Neuropathy peripheral [Not Recovered/Not Resolved]

NARRATIVE: CASE EVENT DATE: 20200714
